FAERS Safety Report 12614142 (Version 1)
Quarter: 2016Q3

REPORT INFORMATION
  Report Type: Spontaneous
  Country: US (occurrence: None)
  Receive Date: 20160801
  Receipt Date: 20160801
  Transmission Date: 20161109
  Serious: Yes (Hospitalization)
  Sender: FDA-Public Use
  Company Number: None

PATIENT
  Age: 75 Year
  Sex: Male
  Weight: 72.3 kg

DRUGS (1)
  1. WARFARIN [Suspect]
     Active Substance: WARFARIN
     Indication: AORTIC VALVE REPLACEMENT
     Dosage: MG PO
     Route: 048
     Dates: start: 20040203

REACTIONS (3)
  - Gastric haemorrhage [None]
  - Presyncope [None]
  - Small intestine carcinoma [None]

NARRATIVE: CASE EVENT DATE: 20160620
